FAERS Safety Report 9800831 (Version 4)
Quarter: 2014Q2

REPORT INFORMATION
  Report Type: Spontaneous
  Country: DE (occurrence: DE)
  Receive Date: 20140107
  Receipt Date: 20140415
  Transmission Date: 20141212
  Serious: Yes (Hospitalization, Other)
  Sender: FDA-Public Use
  Company Number: DE-JNJFOC-20140101445

PATIENT
  Sex: Female
  Weight: 65 kg

DRUGS (5)
  1. XARELTO [Suspect]
     Indication: ATRIAL FIBRILLATION
     Route: 048
  2. XARELTO [Suspect]
     Indication: ATRIAL FIBRILLATION
     Route: 048
  3. XARELTO [Suspect]
     Indication: CEREBROVASCULAR ACCIDENT PROPHYLAXIS
     Route: 048
  4. XARELTO [Suspect]
     Indication: CEREBROVASCULAR ACCIDENT PROPHYLAXIS
     Route: 048
  5. MARCUMAR [Concomitant]
     Route: 065

REACTIONS (7)
  - Inflammation [Unknown]
  - Haematoma [Unknown]
  - Haemarthrosis [Unknown]
  - Soft tissue haemorrhage [Unknown]
  - Overdose [Unknown]
  - Haemorrhagic anaemia [Unknown]
  - Muscle haemorrhage [Unknown]
